FAERS Safety Report 7885179-1 (Version None)
Quarter: 2011Q4

REPORT INFORMATION
  Report Type: 
  Country: None (occurrence: None)
  Receive Date: 20111102
  Receipt Date: 20101111
  Transmission Date: 20120403
  Serious: No
  Sender: FDA-Public Use
  Company Number: US-BAYER-201041439NA

PATIENT
  Age: 38 Year
  Sex: Female
  Weight: 48.182 kg

DRUGS (3)
  1. ULTRAVIST 300 [Suspect]
     Indication: ABDOMINAL PAIN
  2. ULTRAVIST 300 [Suspect]
     Indication: COMPUTERISED TOMOGRAM ABDOMEN
  3. ULTRAVIST 300 [Suspect]
     Indication: APPENDICITIS
     Dosage: AT THE RATE OF 1.5 ML/SEC WITH POWER INJECTOR
     Route: 042
     Dates: start: 20101111, end: 20101111

REACTIONS (4)
  - HEADACHE [None]
  - RASH ERYTHEMATOUS [None]
  - ERYTHEMA [None]
  - RASH MACULAR [None]
